FAERS Safety Report 9548414 (Version 1)
Quarter: 2013Q2

REPORT INFORMATION
  Report Type: Spontaneous
  Country: US (occurrence: None)
  Receive Date: 20130627
  Receipt Date: 20130627
  Transmission Date: 20140414
  Serious: No
  Sender: FDA-Public Use
  Company Number: 1000044709

PATIENT
  Age: 42 Year
  Sex: Female

DRUGS (2)
  1. LIZNESS [Suspect]
     Indication: IRRITABLE BOWEL SYNDROME
     Dosage: 145 MCG, 1 IN 1 D
     Route: 048
     Dates: start: 20130416, end: 20130423
  2. ARMOUR THYROID (THYROID) (TABLETS) (THYROID) [Concomitant]

REACTIONS (4)
  - Drug ineffective [None]
  - Faeces discoloured [None]
  - Diarrhoea [None]
  - Gastrointestinal motility disorder [None]
